FAERS Safety Report 17281791 (Version 1)
Quarter: 2020Q1

REPORT INFORMATION
  Report Type: Spontaneous
  Country: US (occurrence: US)
  Receive Date: 20191227
  Receipt Date: 20191227
  Transmission Date: 20200409
  Serious: Yes (Hospitalization)
  Sender: FDA-Public Use
  Company Number: None

PATIENT
  Age: 61 Year
  Sex: Female

DRUGS (15)
  1. HYDRO/APAP [Concomitant]
     Active Substance: ACETAMINOPHEN\HYDROCODONE
  2. OMPRAZOLE [Concomitant]
     Active Substance: OMEPRAZOLE
  3. FLUTICASONE. [Concomitant]
     Active Substance: FLUTICASONE
  4. AMITRIPTYLIN [Concomitant]
     Active Substance: AMITRIPTYLINE
  5. ESBRIET [Suspect]
     Active Substance: PIRFENIDONE
     Indication: IDIOPATHIC PULMONARY FIBROSIS
     Route: 048
     Dates: start: 20191129
  6. DOXYCYC MNO [Concomitant]
  7. CEFPODOXIME [Concomitant]
     Active Substance: CEFPODOXIME
  8. BUPRON HCL [Concomitant]
  9. METHYLPRED [Concomitant]
     Active Substance: METHYLPREDNISOLONE
  10. MELOXICAM. [Concomitant]
     Active Substance: MELOXICAM
  11. LEVOFLOXACIN. [Concomitant]
     Active Substance: LEVOFLOXACIN
  12. LYRICA [Concomitant]
     Active Substance: PREGABALIN
  13. TRELEGY AER ELLIPTA [Concomitant]
  14. TIZANIDINE. [Concomitant]
     Active Substance: TIZANIDINE
  15. LISINO/HCTZ [Concomitant]
     Active Substance: HYDROCHLOROTHIAZIDE\LISINOPRIL

REACTIONS (1)
  - Hospitalisation [None]
